FAERS Safety Report 5007294-2 (Version None)
Quarter: 2006Q2

REPORT INFORMATION
  Report Type: 
  Country: None (occurrence: None)
  Receive Date: 20060519
  Receipt Date: 20060519
  Transmission Date: 20061013
  Serious: Yes (Hospitalization)
  Sender: FDA-Public Use
  Company Number: None

PATIENT
  Age: 66 Year
  Sex: Female
  Weight: 59.8748 kg

DRUGS (2)
  1. DIGOXIN [Suspect]
     Indication: ARRHYTHMIA
     Dosage: 0.125 MG PO QD
     Route: 048
     Dates: start: 20060321
  2. DILTIAZEM [Suspect]
     Indication: ARRHYTHMIA
     Dosage: 30 MG PO TID
     Route: 048
     Dates: start: 20060331

REACTIONS (2)
  - HEART RATE DECREASED [None]
  - NODAL RHYTHM [None]
